FAERS Safety Report 25282126 (Version 1)
Quarter: 2025Q2

REPORT INFORMATION
  Report Type: Spontaneous
  Country: US (occurrence: US)
  Receive Date: 20250508
  Receipt Date: 20250508
  Transmission Date: 20250717
  Serious: No
  Sender: ELI LILLY AND COMPANY
  Company Number: US-ELI_LILLY_AND_COMPANY-US202505003580

PATIENT
  Age: 73 Year
  Sex: Female

DRUGS (2)
  1. TALTZ [Suspect]
     Active Substance: IXEKIZUMAB
     Indication: Psoriasis
     Route: 065
  2. TALTZ [Suspect]
     Active Substance: IXEKIZUMAB
     Route: 065
     Dates: start: 20250415

REACTIONS (4)
  - Illness [Unknown]
  - Insomnia [Unknown]
  - Disturbance in attention [Unknown]
  - Product dose omission issue [Unknown]
